FAERS Safety Report 7437093-3 (Version None)
Quarter: 2011Q2

REPORT INFORMATION
  Report Type: 
  Country: None (occurrence: None)
  Receive Date: 20110426
  Receipt Date: 20110413
  Transmission Date: 20111010
  Serious: Yes (Other)
  Sender: FDA-Public Use
  Company Number: PHHY2011FR31813

PATIENT
  Age: 34 Year
  Sex: Female

DRUGS (2)
  1. LAMISIL [Suspect]
     Indication: ONYCHOMYCOSIS
     Dosage: 250 MG, UNK
     Dates: start: 20110210, end: 20110316
  2. ORAL CONTRACEPTIVE NOS [Concomitant]

REACTIONS (3)
  - NUCLEAR MAGNETIC RESONANCE IMAGING SPINAL CORD ABNORMAL [None]
  - FORMICATION [None]
  - HYPOAESTHESIA [None]
